FAERS Safety Report 8070840-9 (Version None)
Quarter: 2012Q1

REPORT INFORMATION
  Report Type: 
  Country: None (occurrence: None)
  Receive Date: 20120125
  Receipt Date: 20111216
  Transmission Date: 20120608
  Serious: Yes (Other)
  Sender: FDA-Public Use
  Company Number: JP-GLAXOSMITHKLINE-B0770516A

PATIENT
  Age: 79 Year
  Sex: Female

DRUGS (3)
  1. GASTROM [Concomitant]
     Route: 048
  2. CEFAZOLIN SODIUM [Concomitant]
     Route: 048
  3. ZANTAC [Suspect]
     Indication: PRODUCT USED FOR UNKNOWN INDICATION
     Route: 048

REACTIONS (2)
  - PLATELET COUNT DECREASED [None]
  - THROMBOCYTOPENIC PURPURA [None]
